FAERS Safety Report 20626870 (Version 1)
Quarter: 2022Q1

REPORT INFORMATION
  Report Type: Spontaneous
  Country: US (occurrence: None)
  Receive Date: 20220322
  Receipt Date: 20220322
  Transmission Date: 20220424
  Serious: Yes (Other)
  Sender: FDA-Public Use
  Company Number: None

PATIENT
  Age: 58 Year
  Sex: Male
  Weight: 86.4 kg

DRUGS (4)
  1. CARVEDILOL [Suspect]
     Active Substance: CARVEDILOL
     Indication: Hypertension
     Dosage: FREQUENCY : TWICE A DAY;?
     Route: 048
     Dates: start: 20190119, end: 20200406
  2. ATENOLOL [Concomitant]
     Active Substance: ATENOLOL
  3. LISINOPRIL [Concomitant]
     Active Substance: LISINOPRIL
  4. VITAMINS [Concomitant]
     Active Substance: VITAMINS

REACTIONS (3)
  - Adverse drug reaction [None]
  - Drug screen positive [None]
  - Quality of life decreased [None]

NARRATIVE: CASE EVENT DATE: 20200411
